FAERS Safety Report 9087029 (Version 4)
Quarter: 2013Q1

REPORT INFORMATION
  Report Type: Report from Study
  Country: DE (occurrence: DE)
  Receive Date: 20130201
  Receipt Date: 20130226
  Transmission Date: 20140127
  Serious: Yes (Hospitalization)
  Sender: FDA-Public Use
  Company Number: DE-ROCHE-1182883

PATIENT
  Age: 59 Year
  Sex: Female
  Weight: 97 kg

DRUGS (4)
  1. BEVACIZUMAB [Suspect]
     Indication: BREAST CANCER
     Dosage: DATE OF LAST DOSE PRIOR TO SAE: 02/JAN/2013
     Route: 042
     Dates: start: 20121029, end: 20130121
  2. CARBOPLATIN [Suspect]
     Indication: BREAST CANCER
     Dosage: 1.5 AUC, DATE OF LAST DOSE PRIOR TO SAE: 14/JAN/2013
     Route: 042
     Dates: start: 20121029, end: 20130121
  3. MYOCET [Suspect]
     Indication: BREAST CANCER
     Dosage: DATE OF LAST DOSE PRIOR TO SAE: 14/JAN/2013
     Route: 042
     Dates: start: 20121029, end: 20130121
  4. PACLITAXEL [Suspect]
     Indication: BREAST CANCER
     Dosage: DATE OF LAST DOSE PRIOR TO SAE: 14/JAN/2013
     Route: 042
     Dates: start: 20121023, end: 20130121

REACTIONS (1)
  - Eastern Cooperative Oncology Group performance status worsened [Recovered/Resolved]
